FAERS Safety Report 25236186 (Version 2)
Quarter: 2025Q4

REPORT INFORMATION
  Report Type: Spontaneous
  Country: CN (occurrence: CN)
  Receive Date: 20250424
  Receipt Date: 20251114
  Transmission Date: 20260117
  Serious: Yes (Other)
  Sender: PFIZER
  Company Number: CN-PFIZER INC-PV202400014896

PATIENT
  Age: 19 Year
  Sex: Male

DRUGS (27)
  1. XYNTHA [Suspect]
     Active Substance: MOROCTOCOG ALFA
     Indication: Factor VIII deficiency
     Dosage: UNK
     Route: 065
     Dates: start: 20230406
  2. XYNTHA [Suspect]
     Active Substance: MOROCTOCOG ALFA
     Dosage: 2000 IU, 1X/DAY
     Route: 040
     Dates: start: 20230608
  3. XYNTHA [Suspect]
     Active Substance: MOROCTOCOG ALFA
     Dosage: 3000 IU, ST
     Route: 065
     Dates: start: 20230713
  4. XYNTHA [Suspect]
     Active Substance: MOROCTOCOG ALFA
     Dosage: 1000 IU, ST
     Route: 065
     Dates: start: 20230714
  5. XYNTHA [Suspect]
     Active Substance: MOROCTOCOG ALFA
     Dosage: 2000 IU, 1X/DAY
     Route: 040
     Dates: start: 20230720
  6. XYNTHA [Suspect]
     Active Substance: MOROCTOCOG ALFA
     Dosage: 2000 IU, 2X/DAY
     Route: 040
     Dates: start: 20230914
  7. XYNTHA [Suspect]
     Active Substance: MOROCTOCOG ALFA
     Dosage: 2000 IU, BID
     Route: 040
     Dates: start: 20231012
  8. XYNTHA [Suspect]
     Active Substance: MOROCTOCOG ALFA
     Dosage: 2000 IU, TIW
     Route: 040
     Dates: start: 20231109
  9. XYNTHA [Suspect]
     Active Substance: MOROCTOCOG ALFA
     Dosage: 2000 IU, TIW
     Route: 040
     Dates: start: 20231207
  10. XYNTHA [Suspect]
     Active Substance: MOROCTOCOG ALFA
     Dosage: 2000 IU, TIW
     Route: 040
     Dates: start: 20240102
  11. XYNTHA [Suspect]
     Active Substance: MOROCTOCOG ALFA
     Dosage: 1500 IU, 2X/DAY
     Route: 040
     Dates: start: 20240201
  12. XYNTHA [Suspect]
     Active Substance: MOROCTOCOG ALFA
     Dosage: 1800 IU, BID
     Route: 040
     Dates: start: 20240305
  13. XYNTHA [Suspect]
     Active Substance: MOROCTOCOG ALFA
     Dosage: 1800 IU, BID
     Route: 040
     Dates: start: 20240405
  14. XYNTHA [Suspect]
     Active Substance: MOROCTOCOG ALFA
     Dosage: 1800 IU, BID
     Route: 040
     Dates: start: 20240503
  15. XYNTHA [Suspect]
     Active Substance: MOROCTOCOG ALFA
     Dosage: 1500 IU, 2X/DAY
     Route: 040
     Dates: start: 20240603
  16. XYNTHA [Suspect]
     Active Substance: MOROCTOCOG ALFA
     Dosage: 1500 IU, 2X/DAY
     Route: 040
     Dates: start: 20240702
  17. XYNTHA [Suspect]
     Active Substance: MOROCTOCOG ALFA
     Dosage: 1500 IU, 2X/DAY
     Route: 040
     Dates: start: 20240803
  18. XYNTHA [Suspect]
     Active Substance: MOROCTOCOG ALFA
     Dosage: 1500 IU, 2X/DAY
     Route: 040
     Dates: start: 20240903
  19. XYNTHA [Suspect]
     Active Substance: MOROCTOCOG ALFA
     Dosage: 1500 IU, 2X/DAY
     Route: 040
     Dates: start: 20241006
  20. XYNTHA [Suspect]
     Active Substance: MOROCTOCOG ALFA
     Dosage: 1500 IU, 2X/DAY
     Route: 040
     Dates: start: 20241104
  21. XYNTHA [Suspect]
     Active Substance: MOROCTOCOG ALFA
     Dosage: 1500 IU, 2X/DAY
     Route: 040
     Dates: start: 20241205
  22. XYNTHA [Suspect]
     Active Substance: MOROCTOCOG ALFA
     Dosage: 1500 IU, 2X/DAY
     Route: 040
     Dates: start: 20250103
  23. XYNTHA [Suspect]
     Active Substance: MOROCTOCOG ALFA
     Dosage: 1500 IU, 2X/DAY
     Route: 040
     Dates: start: 20250206
  24. XYNTHA [Suspect]
     Active Substance: MOROCTOCOG ALFA
     Dosage: 1500 IU, 2X/DAY
     Route: 040
     Dates: start: 20250304
  25. XYNTHA [Suspect]
     Active Substance: MOROCTOCOG ALFA
     Dosage: 1500 IU, 2X/DAY
     Route: 040
     Dates: start: 20250401
  26. XYNTHA [Suspect]
     Active Substance: MOROCTOCOG ALFA
     Dosage: 1000 IU, 1X/DAY
     Route: 041
     Dates: start: 20250422
  27. XYNTHA [Suspect]
     Active Substance: MOROCTOCOG ALFA
     Dosage: 4000 IU, 1X/DAY
     Route: 040

REACTIONS (3)
  - Haematoma [Unknown]
  - Ankle operation [Unknown]
  - Off label use [Unknown]

NARRATIVE: CASE EVENT DATE: 20250422
